FAERS Safety Report 18212892 (Version 1)
Quarter: 2020Q3

REPORT INFORMATION
  Report Type: Spontaneous
  Country: US (occurrence: US)
  Receive Date: 20200830
  Receipt Date: 20200830
  Transmission Date: 20201103
  Serious: Yes (Hospitalization, Congenital Anomaly, Other)
  Sender: FDA-Public Use
  Company Number: None

PATIENT
  Sex: Female
  Weight: 94.35 kg

DRUGS (1)
  1. NEXPLANON [Suspect]
     Active Substance: ETONOGESTREL
     Dates: start: 20171122, end: 20180703

REACTIONS (4)
  - Pregnancy [None]
  - Abortion spontaneous [None]
  - Menorrhagia [None]
  - Congenital anomaly [None]
